FAERS Safety Report 6765707-X (Version None)
Quarter: 2010Q2

REPORT INFORMATION
  Report Type: 
  Country: None (occurrence: None)
  Receive Date: 20100611
  Receipt Date: 20100607
  Transmission Date: 20101027
  Serious: Yes (Other)
  Sender: FDA-Public Use
  Company Number: CA-TEVA-232510USA

PATIENT
  Sex: Female

DRUGS (10)
  1. LANSOPRAZOLE [Suspect]
     Route: 048
     Dates: start: 20090301
  2. LANSOPRAZOLE [Suspect]
     Route: 048
     Dates: start: 20080301, end: 20090301
  3. LANSOPRAZOLE [Suspect]
  4. LOSARTAN POTASSIUM [Concomitant]
  5. LEVOTHYROXINE SODIUM [Concomitant]
  6. MELOXICAM [Concomitant]
  7. RILUZOLE [Concomitant]
  8. TERBUTALINE SULFATE [Concomitant]
  9. BUDESONIDE [Concomitant]
  10. OXAZEPAM [Concomitant]

REACTIONS (2)
  - AMYOTROPHIC LATERAL SCLEROSIS [None]
  - MUSCULAR WEAKNESS [None]
